FAERS Safety Report 22200781 (Version 1)
Quarter: 2023Q2

REPORT INFORMATION
  Report Type: Spontaneous
  Country: US (occurrence: US)
  Receive Date: 20230412
  Receipt Date: 20230412
  Transmission Date: 20230722
  Serious: No
  Sender: FDA-Public Use
  Company Number: US-Hikma Pharmaceuticals USA Inc.-US-H14001-22-01358

PATIENT
  Sex: Male
  Weight: 117 kg

DRUGS (6)
  1. FENTANYL [Suspect]
     Active Substance: FENTANYL
     Indication: Breakthrough pain
     Dosage: UNKNOWN
     Route: 042
     Dates: start: 20220328
  2. KETAMINE [Suspect]
     Active Substance: KETAMINE
     Indication: Product used for unknown indication
     Dosage: UNKNOWN
     Route: 041
     Dates: start: 20220328, end: 20220328
  3. DSUVIA [Suspect]
     Active Substance: SUFENTANIL
     Indication: Pain management
     Route: 060
     Dates: start: 20220328, end: 20220328
  4. DSUVIA [Suspect]
     Active Substance: SUFENTANIL
     Route: 060
     Dates: start: 20220328, end: 20220328
  5. DSUVIA [Suspect]
     Active Substance: SUFENTANIL
     Route: 060
     Dates: start: 20220328, end: 20220328
  6. DSUVIA [Suspect]
     Active Substance: SUFENTANIL
     Route: 060
     Dates: start: 20220328, end: 20220328

REACTIONS (1)
  - Dizziness [Unknown]

NARRATIVE: CASE EVENT DATE: 20220328
